FAERS Safety Report 4875713-8 (Version None)
Quarter: 2006Q1

REPORT INFORMATION
  Report Type: 
  Country: None (occurrence: None)
  Receive Date: 20060105
  Receipt Date: 20051221
  Transmission Date: 20060701
  Serious: Yes (Other)
  Sender: FDA-Public Use
  Company Number: 2005SS000916

PATIENT
  Age: 74 Year
  Sex: Female

DRUGS (1)
  1. BOTULINUM TOXIN TYPE B (BOTULINUM TOXIN TYPE B) [Suspect]
     Indication: HYPERTONIC BLADDER
     Dosage: 5000 U; IM
     Route: 030

REACTIONS (1)
  - URINARY RETENTION [None]
